FAERS Safety Report 5041631-8 (Version None)
Quarter: 2006Q2

REPORT INFORMATION
  Report Type: 
  Country: None (occurrence: None)
  Receive Date: 20060601
  Receipt Date: 20060228
  Transmission Date: 20061013
  Serious: No
  Sender: FDA-Public Use
  Company Number: 2006PV009441

PATIENT
  Age: 77 Year
  Sex: Female
  Weight: 81.6475 kg

DRUGS (7)
  1. BYETTA [Suspect]
     Indication: DIABETES MELLITUS NON-INSULIN-DEPENDENT
     Dosage: 5 MCG;BID;SC
     Route: 058
     Dates: start: 20060201
  2. ALTACE [Concomitant]
  3. SYNTHROID [Concomitant]
  4. ACTOS /USA/ [Concomitant]
  5. ZOCOR [Concomitant]
  6. PAXIL [Concomitant]
  7. BETAPACE [Concomitant]

REACTIONS (1)
  - CONTUSION [None]
